FAERS Safety Report 24131017 (Version 1)
Quarter: 2024Q3

REPORT INFORMATION
  Report Type: Report from Study
  Country: KR (occurrence: None)
  Receive Date: 20240724
  Receipt Date: 20240724
  Transmission Date: 20241017
  Serious: Yes (Other)
  Sender: ASTRAZENECA
  Company Number: 2024A147674

PATIENT
  Age: 854 Month
  Sex: Male

DRUGS (4)
  1. TAGRISSO [Suspect]
     Active Substance: OSIMERTINIB
     Indication: Non-small cell lung cancer
     Route: 048
     Dates: start: 20231213, end: 20240624
  2. MINOC IN C AP 50mg [Concomitant]
  3. LYRIC A C AP 75mg [Concomitant]
     Indication: Adverse event
  4. DULOXTA C AP 30mg [Concomitant]
     Indication: Adverse event

REACTIONS (1)
  - Neurotoxicity [Recovering/Resolving]

NARRATIVE: CASE EVENT DATE: 20240523
